FAERS Safety Report 12643023 (Version 1)
Quarter: 2016Q3

REPORT INFORMATION
  Report Type: Spontaneous
  Country: IT (occurrence: IT)
  Receive Date: 20160811
  Receipt Date: 20160811
  Transmission Date: 20161109
  Serious: Yes (Other)
  Sender: FDA-Public Use
  Company Number: IT-CIPLA LTD.-2016IT17078

PATIENT

DRUGS (11)
  1. EPIRUBICIN [Suspect]
     Active Substance: EPIRUBICIN
     Indication: METASTATIC GASTRIC CANCER
     Dosage: UNK, SIX CYCLES
     Route: 065
  2. CISPLATIN. [Suspect]
     Active Substance: CISPLATIN
     Indication: METASTATIC GASTRIC CANCER
     Dosage: UNK, SIX CYCLES
     Route: 065
  3. CETUXIMAB [Suspect]
     Active Substance: CETUXIMAB
     Indication: METASTATIC GASTRIC CANCER
     Dosage: 400 MG/M2, INITIAL DOSE
     Route: 042
  4. LFA [Suspect]
     Active Substance: LEVOLEUCOVORIN
     Indication: METASTATIC GASTRIC CANCER
     Dosage: 100 MG/M2, EVERY TWO WEEKS, 17 CYCLES
     Route: 042
  5. LEUCOVORIN. [Suspect]
     Active Substance: LEUCOVORIN
     Indication: METASTATIC GASTRIC CANCER
     Dosage: UNK, 6 CYCLES
     Route: 065
  6. FLUOROURACIL. [Suspect]
     Active Substance: FLUOROURACIL
     Indication: METASTATIC GASTRIC CANCER
     Dosage: UNK, 6 CYCLES
     Route: 065
  7. FLUOROURACIL. [Suspect]
     Active Substance: FLUOROURACIL
     Dosage: 600 MG/M2, 22-H CONTINUOUS INFUSIONON DAYS 1 AND 2 EVERY TWO WEEKS, 17 CYCLES
     Route: 042
  8. FLUOROURACIL. [Suspect]
     Active Substance: FLUOROURACIL
     Dosage: 400 MG/M2, 22 H CONTINUOUS INFUSION, ON DAYS 1 AND 2 EVERY TWO WEEKS, 17 CYCLES
     Route: 040
  9. IRINOTECAN [Suspect]
     Active Substance: IRINOTECAN
     Indication: METASTATIC GASTRIC CANCER
     Dosage: 180 MG/M2, ON DAY 1, EVERY TWO WEEKS, 17 CYCLES
     Route: 042
  10. CETUXIMAB [Suspect]
     Active Substance: CETUXIMAB
     Dosage: 250 MG/M2, WEEKLY DOSE, 17 CYCLES
     Route: 065
  11. CETUXIMAB [Suspect]
     Active Substance: CETUXIMAB
     Dosage: 250 MG/M2, WEEKLY, 24 DOSES
     Route: 065

REACTIONS (4)
  - Hepatitis C [Unknown]
  - Metastases to lymph nodes [None]
  - Disease recurrence [Unknown]
  - Rash [Unknown]

NARRATIVE: CASE EVENT DATE: 200511
